FAERS Safety Report 8292502 (Version 8)
Quarter: 2013Q2

REPORT INFORMATION
  Report Type: Spontaneous
  Country: US (occurrence: US)
  Receive Date: 20111215
  Receipt Date: 20130524
  Transmission Date: 20140414
  Serious: Yes (Hospitalization, Congenital Anomaly, Other)
  Sender: FDA-Public Use
  Company Number: US-PFIZER INC-2011195278

PATIENT
  Sex: Male
  Weight: 3.2 kg

DRUGS (4)
  1. ZOLOFT [Suspect]
     Dosage: 50 MG, UNK
     Route: 064
  2. ZOLOFT [Suspect]
     Dosage: 100 MG, UNK
     Route: 064
  3. SYNTHROID [Concomitant]
     Route: 064
  4. RHOGAM [Concomitant]
     Route: 064

REACTIONS (28)
  - Maternal exposure during pregnancy [Unknown]
  - Hypoplastic left heart syndrome [Unknown]
  - Atrial septal defect [Unknown]
  - Ventricular septal defect [Unknown]
  - Hydrops foetalis [Unknown]
  - Patent ductus arteriosus [Recovered/Resolved]
  - Aortic valve atresia [Not Recovered/Not Resolved]
  - Mitral valve atresia [Not Recovered/Not Resolved]
  - Aorta hypoplasia [Unknown]
  - Transient tachypnoea of the newborn [Unknown]
  - Respiratory failure [Unknown]
  - Feeding disorder neonatal [Unknown]
  - Jaundice neonatal [Unknown]
  - Sepsis [Unknown]
  - Gastrooesophageal reflux disease [Unknown]
  - Coarctation of the aorta [Not Recovered/Not Resolved]
  - Tricuspid valve incompetence [Unknown]
  - Cardiac failure congestive [Unknown]
  - Congenital pulmonary artery anomaly [Unknown]
  - Right ventricular hypertrophy [Unknown]
  - Atrioventricular block first degree [Unknown]
  - Right atrial dilatation [Unknown]
  - Tricuspid valve disease [Unknown]
  - Cardiomegaly [Unknown]
  - Atrial septal defect [Unknown]
  - Dilatation ventricular [Unknown]
  - Right ventricular dysfunction [Unknown]
  - Failure to thrive [Unknown]
